FAERS Safety Report 6838982-0 (Version None)
Quarter: 2010Q3

REPORT INFORMATION
  Report Type: 
  Country: None (occurrence: None)
  Receive Date: 20100713
  Receipt Date: 20070824
  Transmission Date: 20110219
  Serious: Yes (Other)
  Sender: FDA-Public Use
  Company Number: US-PFIZER INC-2007044566

PATIENT
  Sex: Female
  Weight: 64.4 kg

DRUGS (10)
  1. CHANTIX [Suspect]
     Indication: EX-TOBACCO USER
     Dates: start: 20070518
  2. IBUPROFEN [Suspect]
     Indication: BACK DISORDER
     Dates: end: 20070101
  3. COZAAR [Concomitant]
     Indication: BLOOD PRESSURE
  4. ADVAIR DISKUS 100/50 [Concomitant]
  5. AVANDIA [Concomitant]
  6. ZYPREXA [Concomitant]
  7. PROZAC [Concomitant]
  8. LEVOXYL [Concomitant]
  9. EVISTA [Concomitant]
  10. NEXIUM [Concomitant]

REACTIONS (1)
  - HYPERTENSION [None]
